FAERS Safety Report 12369028 (Version 1)
Quarter: 2016Q2

REPORT INFORMATION
  Report Type: Spontaneous
  Country: FR (occurrence: FR)
  Receive Date: 20160513
  Receipt Date: 20160513
  Transmission Date: 20160815
  Serious: Yes (Hospitalization)
  Sender: FDA-Public Use
  Company Number: FR-ROCHE-1757175

PATIENT
  Age: 21 Year
  Sex: Female

DRUGS (5)
  1. LEVOFLOXACINE [Suspect]
     Active Substance: LEVOFLOXACIN
     Route: 041
     Dates: start: 20160422, end: 20160422
  2. BACTRIM [Suspect]
     Active Substance: SULFAMETHOXAZOLE\TRIMETHOPRIM
     Indication: PRODUCT USED FOR UNKNOWN INDICATION
     Route: 048
     Dates: start: 20160419, end: 20160422
  3. CEFTRIAXONE. [Suspect]
     Active Substance: CEFTRIAXONE
     Route: 041
     Dates: start: 20160422, end: 20160422
  4. LEVOFLOXACINE [Suspect]
     Active Substance: LEVOFLOXACIN
     Indication: PNEUMOCYSTIS JIROVECII INFECTION
     Route: 041
     Dates: start: 20160412, end: 20160419
  5. CEFTRIAXONE. [Suspect]
     Active Substance: CEFTRIAXONE
     Indication: PNEUMOCYSTIS JIROVECII INFECTION
     Route: 041
     Dates: start: 20160412, end: 20160419

REACTIONS (2)
  - Mucocutaneous rash [Recovering/Resolving]
  - Pruritus [Recovering/Resolving]

NARRATIVE: CASE EVENT DATE: 20160421
